FAERS Safety Report 9549547 (Version 3)
Quarter: 2014Q3

REPORT INFORMATION
  Report Type: Spontaneous
  Country: CA (occurrence: CA)
  Receive Date: 20130924
  Receipt Date: 20140902
  Transmission Date: 20150326
  Serious: Yes (Hospitalization, Disabling, Other)
  Sender: FDA-Public Use
  Company Number: CA-009507513-1309CAN009887

PATIENT
  Age: 65 Year
  Sex: Female
  Weight: 77 kg

DRUGS (7)
  1. ASPIRIN. [Concomitant]
     Active Substance: ASPIRIN
     Route: 065
  2. JANUMET [Concomitant]
     Active Substance: METFORMIN HYDROCHLORIDE\SITAGLIPTIN PHOSPHATE
     Route: 065
  3. LIPITOR [Concomitant]
     Active Substance: ATORVASTATIN CALCIUM
  4. FOSAMAX [Suspect]
     Active Substance: ALENDRONATE SODIUM
     Indication: OSTEOPOROSIS
     Dosage: UNK, QW
     Route: 065
     Dates: start: 201205, end: 201302
  5. CARBOCAL D [Concomitant]
     Active Substance: CALCIUM\VITAMIN D
     Route: 065
  6. FOSAVANCE [Suspect]
     Active Substance: ALENDRONATE SODIUM\CHOLECALCIFEROL
     Indication: PRODUCT USED FOR UNKNOWN INDICATION
     Dosage: UNK, QW
     Route: 065
     Dates: start: 2001, end: 201205
  7. DETROL [Concomitant]
     Active Substance: TOLTERODINE TARTRATE
     Route: 065

REACTIONS (3)
  - Stress fracture [Unknown]
  - Atypical femur fracture [Unknown]
  - Asthenia [Unknown]
